FAERS Safety Report 8625428-5 (Version None)
Quarter: 2012Q3

REPORT INFORMATION
  Report Type: 
  Country: None (occurrence: None)
  Receive Date: 20120827
  Receipt Date: 20120822
  Transmission Date: 20120928
  Serious: Yes (Other)
  Sender: FDA-Public Use
  Company Number: CHPA2012CA018645

PATIENT
  Age: 65 Year
  Sex: Male

DRUGS (2)
  1. NICODERM [Suspect]
     Indication: SMOKING CESSATION THERAPY
     Dosage: UNK, UNK
     Dates: start: 20100101
  2. NICOTINE [Suspect]
     Indication: SMOKING CESSATION THERAPY
     Dosage: UNK, UNK
     Route: 062

REACTIONS (1)
  - DIABETES MELLITUS [None]
